FAERS Safety Report 11225026 (Version 1)
Quarter: 2015Q2

REPORT INFORMATION
  Report Type: Report from Study
  Country: US (occurrence: US)
  Receive Date: 20150629
  Receipt Date: 20150629
  Transmission Date: 20150821
  Serious: Yes (Hospitalization, Other)
  Sender: FDA-Public Use
  Company Number: US-RB PHARMACEUTICALS LIMITED-RB-080655-2015

PATIENT
  Age: 0 Year
  Sex: Female
  Weight: 3.8 kg

DRUGS (4)
  1. SUBOXONE [Suspect]
     Active Substance: BUPRENORPHINE HYDROCHLORIDE\NALOXONE HYDROCHLORIDE
     Indication: DRUG DEPENDENCE
     Dosage: 8 MG, QD
     Route: 064
     Dates: start: 201203, end: 20121206
  2. NICOTINE. [Suspect]
     Active Substance: NICOTINE
     Indication: NICOTINE DEPENDENCE
     Dosage: 20 CIGARETTES DAILY
     Route: 064
     Dates: start: 201203, end: 20121206
  3. SUBOXONE [Suspect]
     Active Substance: BUPRENORPHINE HYDROCHLORIDE\NALOXONE HYDROCHLORIDE
     Dosage: 8 MG, QD
     Route: 063
     Dates: start: 20121206, end: 201307
  4. NICOTINE. [Suspect]
     Active Substance: NICOTINE
     Dosage: 20 CIGARETTES DAILY
     Route: 063
     Dates: start: 20121206, end: 201307

REACTIONS (5)
  - Diarrhoea neonatal [Recovered/Resolved]
  - Oedema neonatal [Recovered/Resolved]
  - Exposure during breast feeding [Recovered/Resolved]
  - Weight decrease neonatal [Recovered/Resolved]
  - Foetal exposure during pregnancy [Recovered/Resolved]

NARRATIVE: CASE EVENT DATE: 201203
